FAERS Safety Report 7271542-9 (Version None)
Quarter: 2011Q1

REPORT INFORMATION
  Report Type: 
  Country: None (occurrence: None)
  Receive Date: 20110128
  Receipt Date: 20110128
  Transmission Date: 20110831
  Serious: Yes (Other)
  Sender: FDA-Public Use
  Company Number: None

PATIENT
  Sex: Male
  Weight: 86.1834 kg

DRUGS (2)
  1. JANTOVEN [Suspect]
     Indication: MITRAL VALVE REPLACEMENT
     Dosage: 3MG QDAY PO
     Route: 048
     Dates: start: 20101227, end: 20110111
  2. JANTOVEN [Suspect]
     Indication: ATRIAL FIBRILLATION
     Dosage: 3MG QDAY PO
     Route: 048
     Dates: start: 20101227, end: 20110111

REACTIONS (3)
  - INTERNATIONAL NORMALISED RATIO DECREASED [None]
  - PRODUCT MEASURED POTENCY ISSUE [None]
  - PRODUCT COUNTERFEIT [None]
